FAERS Safety Report 18625699 (Version 1)
Quarter: 2020Q4

REPORT INFORMATION
  Report Type: Spontaneous
  Country: US (occurrence: US)
  Receive Date: 20201216
  Receipt Date: 20201216
  Transmission Date: 20210114
  Serious: No
  Sender: FDA-Public Use
  Company Number: US-PERRIGO-20US006122

PATIENT
  Age: 45 Year
  Sex: Female
  Weight: 90.7 kg

DRUGS (2)
  1. DIAMOX                             /00016901/ [Concomitant]
     Active Substance: ACETAZOLAMIDE
     Indication: CSF VOLUME INCREASED
     Dosage: UNK, UNK
     Route: 065
  2. CIMETIDINE [Suspect]
     Active Substance: CIMETIDINE
     Indication: GASTROOESOPHAGEAL REFLUX DISEASE
     Dosage: 200 MG, BID
     Route: 048
     Dates: start: 20200418, end: 20200423

REACTIONS (4)
  - Drug ineffective [Unknown]
  - Condition aggravated [Recovered/Resolved]
  - Throat irritation [Recovered/Resolved]
  - Chest pain [Recovered/Resolved]

NARRATIVE: CASE EVENT DATE: 20200418
